FAERS Safety Report 20808188 (Version 1)
Quarter: 2022Q2

REPORT INFORMATION
  Report Type: Spontaneous
  Country: US (occurrence: None)
  Receive Date: 20220509
  Receipt Date: 20220509
  Transmission Date: 20220720
  Serious: No
  Sender: FDA-Public Use
  Company Number: None

PATIENT
  Age: 55 Year
  Sex: Female
  Weight: 81 kg

DRUGS (1)
  1. NIRMATRELVIR\RITONAVIR [Suspect]
     Active Substance: NIRMATRELVIR\RITONAVIR
     Indication: Upper respiratory tract infection
     Dosage: OTHER QUANTITY : NTV 300MG/FIT 100M;?FREQUENCY : TWICE A DAY;?
     Route: 048
     Dates: start: 20220203, end: 20220208

REACTIONS (3)
  - Dysgeusia [None]
  - Gastrooesophageal reflux disease [None]
  - Condition aggravated [None]

NARRATIVE: CASE EVENT DATE: 20220204
